FAERS Safety Report 13083855 (Version 1)
Quarter: 2017Q1

REPORT INFORMATION
  Report Type: Spontaneous
  Country: US (occurrence: US)
  Receive Date: 20170104
  Receipt Date: 20170104
  Transmission Date: 20170428
  Serious: No
  Sender: FDA-Public Use
  Company Number: US-BAYER-2017-001336

PATIENT
  Age: 55 Year
  Sex: Male
  Weight: 101.1 kg

DRUGS (3)
  1. RANEXA [Concomitant]
     Active Substance: RANOLAZINE
  2. PRASUGREL [Concomitant]
     Active Substance: PRASUGREL
  3. MIRALAX [Suspect]
     Active Substance: POLYETHYLENE GLYCOL 3350
     Indication: GASTROINTESTINAL DISORDER
     Dosage: UNK
     Route: 048
     Dates: start: 2015

REACTIONS (3)
  - Product use issue [Unknown]
  - Middle insomnia [Recovered/Resolved with Sequelae]
  - Flatulence [Recovered/Resolved with Sequelae]
